FAERS Safety Report 23402056 (Version 1)
Quarter: 2024Q1

REPORT INFORMATION
  Report Type: Spontaneous
  Country: US (occurrence: US)
  Receive Date: 20240115
  Receipt Date: 20240115
  Transmission Date: 20240410
  Serious: No
  Sender: FDA-Public Use
  Company Number: US-SA-SAC20240112000494

PATIENT
  Age: 76 Year
  Sex: Male
  Weight: 63 kg

DRUGS (26)
  1. DUPIXENT [Suspect]
     Active Substance: DUPILUMAB
     Indication: Dermatitis atopic
     Dosage: 300 MG, QOW
     Route: 058
  2. PLAQUENIL [Concomitant]
     Active Substance: HYDROXYCHLOROQUINE SULFATE
  3. SULFASALAZINE [Concomitant]
     Active Substance: SULFASALAZINE
  4. BRIMONIDINE TARTRATE [Concomitant]
     Active Substance: BRIMONIDINE TARTRATE
  5. TIMOLOL [Concomitant]
     Active Substance: TIMOLOL
  6. LATANOPROST [Concomitant]
     Active Substance: LATANOPROST
  7. PRASTERONE [Concomitant]
     Active Substance: PRASTERONE
  8. UBIQUINOL [Concomitant]
     Active Substance: UBIQUINOL
  9. CIALIS [Concomitant]
     Active Substance: TADALAFIL
  10. ANDROGEL [Concomitant]
     Active Substance: TESTOSTERONE
  11. MICARDIS [Concomitant]
     Active Substance: TELMISARTAN
  12. CYTOMEL [Concomitant]
     Active Substance: LIOTHYRONINE SODIUM
  13. SYNTHROID [Concomitant]
     Active Substance: LEVOTHYROXINE SODIUM
  14. RYBELSUS [Concomitant]
     Active Substance: SEMAGLUTIDE
  15. SEMGLEE [INSULIN GLARGINE] [Concomitant]
  16. PROZAC [Concomitant]
     Active Substance: FLUOXETINE HYDROCHLORIDE
  17. JANUMET [Concomitant]
     Active Substance: METFORMIN HYDROCHLORIDE\SITAGLIPTIN PHOSPHATE
  18. ZINC [Concomitant]
     Active Substance: PYRITHIONE ZINC\ZINC\ZINC CHLORIDE
  19. VITAMIN D NOS [Concomitant]
     Active Substance: VITAMIN D NOS
  20. AQUAPHOR (XIPAMIDE) [Concomitant]
     Active Substance: XIPAMIDE
  21. ZYRTEC [Concomitant]
     Active Substance: CETIRIZINE HYDROCHLORIDE
  22. ALBUTEROL SULFATE [Concomitant]
     Active Substance: ALBUTEROL SULFATE
  23. ASMANEX HFA [Concomitant]
     Active Substance: MOMETASONE FUROATE
  24. BEVESPI AEROSPHERE [Concomitant]
     Active Substance: FORMOTEROL FUMARATE\GLYCOPYRROLATE
  25. SYSTANE (HYPROMELLOSE 2910 (4000 MPA.S)) [Concomitant]
     Active Substance: HYPROMELLOSE 2910 (4000 MPA.S)
  26. GARLIC [Concomitant]
     Active Substance: GARLIC
     Dosage: 1000 MG

REACTIONS (1)
  - Abdominal pain [Recovering/Resolving]

NARRATIVE: CASE EVENT DATE: 20240107
